FAERS Safety Report 18042121 (Version 1)
Quarter: 2020Q3

REPORT INFORMATION
  Report Type: Spontaneous
  Country: CA (occurrence: CA)
  Receive Date: 20200720
  Receipt Date: 20200720
  Transmission Date: 20201103
  Serious: Yes (Hospitalization)
  Sender: FDA-Public Use
  Company Number: CA-TEVA-2020-CA-1801697

PATIENT
  Age: 74 Year
  Sex: Female
  Weight: 107 kg

DRUGS (14)
  1. GEMCITABINE INJECTION 5ML/25ML/50ML SINGLE USE VIALS [Suspect]
     Active Substance: GEMCITABINE
     Route: 042
  2. METOCLOPRAMIDE. [Concomitant]
     Active Substance: METOCLOPRAMIDE
  3. CARBOPLATIN INJECTION BP [Suspect]
     Active Substance: CARBOPLATIN
     Route: 042
  4. FUROSEMIDE. [Concomitant]
     Active Substance: FUROSEMIDE
  5. PANTOPRAZOLE [Concomitant]
     Active Substance: PANTOPRAZOLE
  6. PERINDOPRIL [Concomitant]
     Active Substance: PERINDOPRIL
  7. MULTIVITAMIN [Concomitant]
     Active Substance: VITAMINS
  8. SENNOSIDES. [Concomitant]
     Active Substance: SENNOSIDES
  9. DEXAMETHASONE. [Concomitant]
     Active Substance: DEXAMETHASONE
  10. ONDANSETRON [Concomitant]
     Active Substance: ONDANSETRON
  11. ANTIACIDE SUS [Concomitant]
  12. MORPHINE [Concomitant]
     Active Substance: MORPHINE
  13. SALBUTAMOL [Concomitant]
     Active Substance: ALBUTEROL
  14. SODIUM PHOSPHATE [Concomitant]
     Active Substance: SODIUM PHOSPHATE

REACTIONS (1)
  - Febrile neutropenia [Recovered/Resolved]
